FAERS Safety Report 17766255 (Version 1)
Quarter: 2020Q2

REPORT INFORMATION
  Report Type: Other
  Country: FR (occurrence: FR)
  Receive Date: 20200511
  Receipt Date: 20200511
  Transmission Date: 20200714
  Serious: Yes (Hospitalization)
  Sender: FDA-Public Use
  Company Number: FR-APOTEX-2020AP010728

PATIENT
  Age: 21 Year
  Sex: Female

DRUGS (5)
  1. LAROXYL [Suspect]
     Active Substance: AMITRIPTYLINE HYDROCHLORIDE
     Indication: SUICIDE ATTEMPT
     Dosage: 15 DF, SINGLE
     Route: 048
     Dates: start: 20200406, end: 20200406
  2. VALACICLOVIR [Suspect]
     Active Substance: VALACYCLOVIR HYDROCHLORIDE
     Indication: SUICIDE ATTEMPT
     Dosage: 1500 MG, SINGLE
     Route: 048
     Dates: start: 20200406, end: 20200406
  3. MIRTAZAPINE. [Suspect]
     Active Substance: MIRTAZAPINE
     Indication: SUICIDE ATTEMPT
     Dosage: 45 MG, SINGLE
     Route: 048
     Dates: start: 20200406, end: 20200406
  4. PAROXETINE HYDROCHLORIDE HYDRATE [Suspect]
     Active Substance: PAROXETINE HYDROCHLORIDE
     Indication: SUICIDE ATTEMPT
     Dosage: 120 MG, SINGLE
     Route: 048
     Dates: start: 20200406, end: 20200406
  5. SERESTA [Suspect]
     Active Substance: OXAZEPAM
     Indication: SUICIDE ATTEMPT
     Dosage: 5 DF, SINGLE
     Route: 048
     Dates: start: 20200406, end: 20200406

REACTIONS (5)
  - Somnolence [Recovered/Resolved]
  - Agitation [Recovered/Resolved]
  - Tachycardia [Recovered/Resolved]
  - Dysarthria [Recovered/Resolved]
  - Confusional state [Recovered/Resolved]

NARRATIVE: CASE EVENT DATE: 20200406
